FAERS Safety Report 6520531-8 (Version None)
Quarter: 2009Q4

REPORT INFORMATION
  Report Type: 
  Country: None (occurrence: None)
  Receive Date: 20091229
  Receipt Date: 20091224
  Transmission Date: 20100525
  Serious: Yes (Hospitalization)
  Sender: FDA-Public Use
  Company Number: B0620213A

PATIENT
  Sex: Female

DRUGS (3)
  1. ARIXTRA [Suspect]
     Indication: HEPARIN-INDUCED THROMBOCYTOPENIA
     Dosage: 7.5MG PER DAY
     Route: 058
     Dates: start: 20091204, end: 20091207
  2. ORGARAN [Suspect]
     Indication: HEPARIN-INDUCED THROMBOCYTOPENIA
     Dosage: 750IU THREE TIMES PER DAY
     Route: 058
     Dates: start: 20091202, end: 20091204
  3. CORTANCYL [Concomitant]
     Route: 065

REACTIONS (3)
  - ANAEMIA [None]
  - INCORRECT DOSE ADMINISTERED [None]
  - INTRA-ABDOMINAL HAEMATOMA [None]
